FAERS Safety Report 4509655-4 (Version None)
Quarter: 2004Q4

REPORT INFORMATION
  Report Type: 
  Country: None (occurrence: None)
  Receive Date: 20041124
  Receipt Date: 20041119
  Transmission Date: 20050328
  Serious: Yes (Other)
  Sender: FDA-Public Use
  Company Number: 200413560JP

PATIENT
  Age: 71 Year
  Sex: Male

DRUGS (2)
  1. LASIX [Suspect]
     Route: 048
     Dates: start: 20030401, end: 20030401
  2. UNKNOWN DRUG [Concomitant]

REACTIONS (1)
  - LIVER DISORDER [None]
